FAERS Safety Report 20537972 (Version 2)
Quarter: 2022Q1

REPORT INFORMATION
  Report Type: Spontaneous
  Country: US (occurrence: US)
  Receive Date: 20220302
  Receipt Date: 20220328
  Transmission Date: 20220423
  Serious: No
  Sender: FDA-Public Use
  Company Number: US-PFIZER INC-202200194130

PATIENT
  Age: 66 Year
  Sex: Male

DRUGS (2)
  1. BRAFTOVI [Suspect]
     Active Substance: ENCORAFENIB
     Indication: Neoplasm malignant
     Dosage: 75 MG
  2. MEKTOVI [Suspect]
     Active Substance: BINIMETINIB
     Indication: Neoplasm malignant
     Dosage: 15 MG

REACTIONS (6)
  - Fatigue [Unknown]
  - Weight decreased [Unknown]
  - Hyperphagia [Unknown]
  - Skin hyperpigmentation [Unknown]
  - Lung disorder [Unknown]
  - Fatigue [Unknown]
